FAERS Safety Report 5489731-2 (Version None)
Quarter: 2007Q4

REPORT INFORMATION
  Report Type: 
  Country: None (occurrence: None)
  Receive Date: 20071018
  Receipt Date: 20071012
  Transmission Date: 20080405
  Serious: Yes (Hospitalization, Other)
  Sender: FDA-Public Use
  Company Number: CA-ASTRAZENECA-2007UW01643

PATIENT
  Age: 60 Year
  Sex: Male

DRUGS (2)
  1. SEROQUEL [Suspect]
     Dates: start: 20051101
  2. SEROQUEL [Suspect]

REACTIONS (4)
  - COGNITIVE DISORDER [None]
  - HEPATIC FUNCTION ABNORMAL [None]
  - RENAL IMPAIRMENT [None]
  - TRANSIENT ISCHAEMIC ATTACK [None]
